FAERS Safety Report 7472252-5 (Version None)
Quarter: 2011Q1

REPORT INFORMATION
  Report Type: 
  Country: None (occurrence: None)
  Receive Date: 20110302
  Receipt Date: 20100917
  Transmission Date: 20110831
  Serious: Yes (Hospitalization)
  Sender: FDA-Public Use
  Company Number: 163-21880-10081160

PATIENT
  Age: 65 Year
  Sex: Male

DRUGS (5)
  1. REVLIMID [Suspect]
  2. REVLIMID [Suspect]
  3. REVLIMID [Suspect]
     Indication: MULTIPLE MYELOMA
     Dosage: 25 MG, 1 IN 1 D, PO, 15 MG, 1 IN 1 D, PO, 25 MG, 1 IN 1 D, PO
     Route: 048
     Dates: start: 20100201
  4. REVLIMID [Suspect]
     Indication: MULTIPLE MYELOMA
     Dosage: 25 MG, 1 IN 1 D, PO, 15 MG, 1 IN 1 D, PO, 25 MG, 1 IN 1 D, PO
     Route: 048
     Dates: start: 20100801
  5. REVLIMID [Suspect]
     Indication: MULTIPLE MYELOMA
     Dosage: 25 MG, 1 IN 1 D, PO, 15 MG, 1 IN 1 D, PO, 25 MG, 1 IN 1 D, PO
     Route: 048
     Dates: start: 20100601

REACTIONS (5)
  - NEUROPATHY PERIPHERAL [None]
  - TRAUMATIC HAEMORRHAGE [None]
  - LOCALISED INFECTION [None]
  - LIMB INJURY [None]
  - OEDEMA PERIPHERAL [None]
